FAERS Safety Report 8302612-1 (Version None)
Quarter: 2012Q2

REPORT INFORMATION
  Report Type: 
  Country: None (occurrence: None)
  Receive Date: 20120418
  Receipt Date: 20120410
  Transmission Date: 20120825
  Serious: Yes (Other)
  Sender: FDA-Public Use
  Company Number: 2012HGS-003443

PATIENT
  Age: 51 Year
  Sex: Female
  Weight: 106.5953 kg

DRUGS (14)
  1. PROVIGIL [Concomitant]
  2. FLEXERIL (CYCLOBENZAPRINE HYDROCHLORIDE) (CYCLOBENZAPRINE HYDROCHLORID [Concomitant]
  3. SOMA (CARISOPRODOL) (CARISOPRODOL) [Concomitant]
  4. DOXEPIN (DOXEPIN HYDROCHLORIDE) (DOXEPIN HYDROCHLORIDE) [Concomitant]
  5. MAXALT-MLT (RIZATRIPTAN BENZOATE) (RIZATRIPTAN BENZOATE) [Concomitant]
  6. COMPAZINE (PROCHLORPERAZINE EDISYLATE) (PROCHLORPERAZINE EDISYLATE) [Concomitant]
  7. VICODIN ES (VICODIN) (PARACETAMOL, HYDROCODONE BITARTRATE) [Concomitant]
  8. BENLYSTA [Suspect]
     Indication: SYSTEMIC LUPUS ERYTHEMATOSUS
     Dosage: 1 IN 28 D, INTRAVENOUS DRIP
     Route: 041
     Dates: start: 20111214
  9. FIORICET (AXOTAL /00727001/) (CAFFEINE, BUTALBITAL, PARACETAMOL) [Concomitant]
  10. ZOLOFT [Concomitant]
  11. IMIPRAMINE (IMIPRAMINE HYDROCHLORIDE) (IMIPRAMINE HYDROCHLORIDE) [Concomitant]
  12. CORGARD (NADOLOL) (NADOLOL) [Concomitant]
  13. DIAZEPAM [Concomitant]
  14. ASPIRIN [Concomitant]

REACTIONS (6)
  - HOMICIDE [None]
  - PYREXIA [None]
  - SUICIDAL IDEATION [None]
  - AGGRESSION [None]
  - SINUSITIS [None]
  - SEROTONIN SYNDROME [None]
